FAERS Safety Report 5536406-7 (Version None)
Quarter: 2007Q4

REPORT INFORMATION
  Report Type: 
  Country: None (occurrence: None)
  Receive Date: 20071204
  Receipt Date: 20071102
  Transmission Date: 20080405
  Serious: Yes (Disabling)
  Sender: FDA-Public Use
  Company Number: 2007EU002343

PATIENT
  Age: 59 Year
  Sex: Male

DRUGS (15)
  1. TACROLIMUS [Suspect]
     Indication: PROPHYLAXIS AGAINST TRANSPLANT REJECTION
     Dosage: 4 MG, UID/QD, ORAL; 2.5 MG, BID, ORAL
     Route: 048
     Dates: start: 20040505
  2. DACLIZUMAB(DACLIZUMAB) [Suspect]
     Indication: PROPHYLAXIS AGAINST TRANSPLANT REJECTION
     Dosage: 70 MG, OTHER, IV NOS; 65 MG, OTHER, IV NOS; 140 MG, OTHER, IV NOS
     Route: 042
     Dates: start: 20040505, end: 20040101
  3. DACLIZUMAB(DACLIZUMAB) [Suspect]
     Indication: PROPHYLAXIS AGAINST TRANSPLANT REJECTION
     Dosage: 70 MG, OTHER, IV NOS; 65 MG, OTHER, IV NOS; 140 MG, OTHER, IV NOS
     Route: 042
     Dates: start: 20040101, end: 20040701
  4. MYCOPHENOLATE MOFETIL [Suspect]
     Indication: PROPHYLAXIS AGAINST TRANSPLANT REJECTION
     Dosage: 1 G, UID/QD, ORAL; 1 G, BID, ORAL
     Route: 048
     Dates: start: 20040505
  5. PREDNISONE [Suspect]
     Indication: PROPHYLAXIS AGAINST TRANSPLANT REJECTION
     Dosage: 7.5MG, UID/QD, ORAL ; 20 MG, UID/QD, ORAL
     Route: 048
     Dates: start: 20040505
  6. PREDNISONE [Suspect]
     Indication: PROPHYLAXIS AGAINST TRANSPLANT REJECTION
     Dosage: 7.5MG, UID/QD, ORAL ; 20 MG, UID/QD, ORAL
     Route: 048
     Dates: start: 20040506
  7. AMLODIPINE [Concomitant]
  8. SULFAMETHOXAZOLE AND TRIMETHOPRIM [Concomitant]
  9. VALGANCICLOVIR HCL [Concomitant]
  10. LEVOTHYROXINE SODIUM [Concomitant]
  11. OMEPRAZOLE [Concomitant]
  12. LORAZEPAM [Concomitant]
  13. GLYBURIDE [Concomitant]
  14. LOSARTAN POTASSIUM [Concomitant]
  15. RIFAMPICIN [Concomitant]

REACTIONS (1)
  - CATARACT [None]
